FAERS Safety Report 8450153-3 (Version None)
Quarter: 2012Q2

REPORT INFORMATION
  Report Type: 
  Country: None (occurrence: None)
  Receive Date: 20120620
  Receipt Date: 20120610
  Transmission Date: 20120825
  Serious: Yes (Other)
  Sender: FDA-Public Use
  Company Number: GB-TEVA-342529ISR

PATIENT
  Age: 36 Year
  Sex: Female
  Weight: 91.9 kg

DRUGS (3)
  1. GABAPENTIN [Suspect]
     Indication: ULCER
     Dosage: 900 MILLIGRAM;
     Dates: start: 20110712, end: 20110826
  2. GABAPENTIN [Suspect]
     Indication: PAIN
  3. ACETAMINOPHEN AND CODEINE PHOSPHATE [Concomitant]
     Indication: PAIN
     Dosage: UNIT DOSE: 30MG CODEINE PHOSPHATE, 500MG PARACETAMOL

REACTIONS (1)
  - ABORTION SPONTANEOUS [None]
